FAERS Safety Report 13226904 (Version 3)
Quarter: 2017Q2

REPORT INFORMATION
  Report Type: Report from Study
  Country: US (occurrence: US)
  Receive Date: 20170213
  Receipt Date: 20170428
  Transmission Date: 20170830
  Serious: Yes (Life-Threatening, Hospitalization, Other)
  Sender: FDA-Public Use
  Company Number: US-PFIZER INC-2017057279

PATIENT
  Age: 71 Year
  Sex: Male

DRUGS (3)
  1. SALINE /00075401/ [Concomitant]
     Active Substance: SODIUM CHLORIDE
     Indication: RENAL SALT-WASTING SYNDROME
     Dosage: ISOTONIC INFUSION
     Route: 041
  2. FUROSEMIDE. [Suspect]
     Active Substance: FUROSEMIDE
     Indication: CARDIAC FAILURE
     Dosage: UNK
  3. DEXTROSE 5% [Concomitant]
     Active Substance: DEXTROSE
     Indication: HYPONATRAEMIA
     Dosage: INFUSION
     Route: 041

REACTIONS (2)
  - Polyuria [Unknown]
  - Hypotension [Unknown]
